FAERS Safety Report 24673474 (Version 1)
Quarter: 2024Q4

REPORT INFORMATION
  Report Type: Report from Study
  Country: US (occurrence: US)
  Receive Date: 20241128
  Receipt Date: 20241128
  Transmission Date: 20250115
  Serious: Yes (Other)
  Sender: ABBVIE
  Company Number: US-ABBVIE-6020950

PATIENT
  Age: 40 Year
  Sex: Female

DRUGS (1)
  1. SKYRIZI [Suspect]
     Active Substance: RISANKIZUMAB-RZAA
     Indication: Product used for unknown indication
     Route: 058
     Dates: start: 20220710

REACTIONS (3)
  - Intestinal resection [Recovered/Resolved]
  - Intestinal resection [Unknown]
  - Malnutrition [Recovering/Resolving]

NARRATIVE: CASE EVENT DATE: 20220101
